FAERS Safety Report 11465505 (Version 3)
Quarter: 2015Q4

REPORT INFORMATION
  Report Type: Report from Study
  Country: US (occurrence: US)
  Receive Date: 20150907
  Receipt Date: 20151125
  Transmission Date: 20160304
  Serious: No
  Sender: FDA-Public Use
  Company Number: US-AMGEN-USASL2015088519

PATIENT
  Age: 42 Year
  Sex: Male

DRUGS (2)
  1. ENBREL [Suspect]
     Active Substance: ETANERCEPT
     Indication: PSORIASIS
  2. ENBREL [Suspect]
     Active Substance: ETANERCEPT
     Indication: PSORIATIC ARTHROPATHY
     Dosage: UNK
     Route: 065
     Dates: start: 20071012

REACTIONS (8)
  - Nasopharyngitis [Not Recovered/Not Resolved]
  - Dyspnoea [Unknown]
  - Feeling hot [Unknown]
  - Sleep disorder [Unknown]
  - Rhinorrhoea [Unknown]
  - Chills [Not Recovered/Not Resolved]
  - Hyperhidrosis [Not Recovered/Not Resolved]
  - Influenza like illness [Not Recovered/Not Resolved]
